FAERS Safety Report 5041507-6 (Version None)
Quarter: 2006Q2

REPORT INFORMATION
  Report Type: 
  Country: None (occurrence: None)
  Receive Date: 20060628
  Receipt Date: 20060621
  Transmission Date: 20061013
  Serious: Yes (Other)
  Sender: FDA-Public Use
  Company Number: CHPA2006US06060

PATIENT
  Age: 81 Year
  Sex: Male
  Weight: 99.8 kg

DRUGS (1)
  1. EXCEDRIN EXTRA STRENGTH (NCH)(CAFFEINE CITRATE, ACETYLSALICYLIC ACID, [Suspect]
     Indication: MIGRAINE
     Dosage: 2 TO 6, QD, ORAL
     Route: 048

REACTIONS (3)
  - ALLERGY TO CHEMICALS [None]
  - DRUG ABUSER [None]
  - RASH PRURITIC [None]
